FAERS Safety Report 5130979-4 (Version None)
Quarter: 2006Q4

REPORT INFORMATION
  Report Type: 
  Country: None (occurrence: None)
  Receive Date: 20061019
  Receipt Date: 20060906
  Transmission Date: 20070319
  Serious: Yes (Other)
  Sender: FDA-Public Use
  Company Number: GB-ALLERGAN-0604778US

PATIENT
  Age: 61 Year
  Sex: Male
  Weight: 75 kg

DRUGS (2)
  1. LUMIGAN [Suspect]
     Indication: GLAUCOMA
     Route: 047
     Dates: start: 20060601
  2. ALPHAGAN[R] 0.2% [Concomitant]
     Indication: GLAUCOMA
     Dosage: UNK, BID
     Route: 047

REACTIONS (2)
  - FAT ATROPHY [None]
  - SKIN DISCOLOURATION [None]
